FAERS Safety Report 19147598 (Version 1)
Quarter: 2021Q2

REPORT INFORMATION
  Report Type: Spontaneous
  Country: LB (occurrence: LB)
  Receive Date: 20210416
  Receipt Date: 20210416
  Transmission Date: 20210717
  Serious: Yes (Other)
  Sender: FDA-Public Use
  Company Number: LB-AMGEN-LBNSP2021055566

PATIENT
  Sex: Female

DRUGS (1)
  1. AMGEVITA [Suspect]
     Active Substance: ADALIMUMAB
     Indication: PRODUCT USED FOR UNKNOWN INDICATION
     Dosage: 40 MILLIGRAM
     Route: 058

REACTIONS (5)
  - Maternal exposure during pregnancy [Unknown]
  - Dizziness [Unknown]
  - Pancreatitis acute [Unknown]
  - Emotional disorder [Unknown]
  - Rash [Unknown]
